FAERS Safety Report 13848433 (Version 1)
Quarter: 2017Q3

REPORT INFORMATION
  Report Type: Spontaneous
  Country: US (occurrence: US)
  Receive Date: 20170809
  Receipt Date: 20170809
  Transmission Date: 20171127
  Serious: No
  Sender: FDA-Public Use
  Company Number: US-PURDUE-USA-2017-0139536

PATIENT
  Age: 75 Year
  Sex: Female
  Weight: 71.66 kg

DRUGS (1)
  1. BUTRANS [Suspect]
     Active Substance: BUPRENORPHINE
     Indication: BACK PAIN
     Dosage: 20 MCG/HR, WEEKLY
     Route: 062
     Dates: start: 20160718, end: 20170526

REACTIONS (3)
  - Pruritus [Recovered/Resolved]
  - Thermal burn [Unknown]
  - Application site rash [Unknown]

NARRATIVE: CASE EVENT DATE: 20170419
